FAERS Safety Report 6925566-9 (Version None)
Quarter: 2010Q3

REPORT INFORMATION
  Report Type: 
  Country: None (occurrence: None)
  Receive Date: 20100816
  Receipt Date: 20100804
  Transmission Date: 20110219
  Serious: Yes (Other)
  Sender: FDA-Public Use
  Company Number: MX-ROCHE-720809

PATIENT
  Sex: Female
  Weight: 48 kg

DRUGS (4)
  1. CAPECITABINE [Suspect]
     Indication: GASTRIC CANCER
     Route: 048
     Dates: start: 20100301, end: 20100803
  2. PREDNISONE [Concomitant]
     Dosage: FREQUENCY: DAILY.
     Route: 048
     Dates: start: 20000101
  3. OMEPRAZOLE [Concomitant]
     Indication: GASTRITIS
     Dosage: FREQUENCY: DAILY.
     Route: 048
     Dates: start: 20090101
  4. LORAZEPAM [Concomitant]
     Indication: INSOMNIA
     Dosage: FREQUENCY: AS NEEDED.
     Route: 048
     Dates: start: 20090101

REACTIONS (4)
  - BALANCE DISORDER [None]
  - DIZZINESS [None]
  - PALMAR-PLANTAR ERYTHRODYSAESTHESIA SYNDROME [None]
  - VISUAL ACUITY REDUCED [None]
